FAERS Safety Report 15784867 (Version 2)
Quarter: 2019Q1

REPORT INFORMATION
  Report Type: Spontaneous
  Country: SK (occurrence: SK)
  Receive Date: 20190103
  Receipt Date: 20190117
  Transmission Date: 20190417
  Serious: Yes (Hospitalization, Other)
  Sender: FDA-Public Use
  Company Number: SK-TEVA-2019-SK-994473

PATIENT
  Sex: Female

DRUGS (10)
  1. TRANDOLAPRIL. [Suspect]
     Active Substance: TRANDOLAPRIL
     Indication: HEART RATE INCREASED
  2. FUROSEMIDE. [Suspect]
     Active Substance: FUROSEMIDE
     Indication: OEDEMA
     Route: 065
  3. RILMENIDINE [Suspect]
     Active Substance: RILMENIDINE
     Indication: COUGH
     Route: 065
  4. PREDNISON [Suspect]
     Active Substance: PREDNISONE
     Indication: IDIOPATHIC PULMONARY FIBROSIS
     Dosage: INITIAL DOSE
     Route: 065
  5. VERAPAMIL [Suspect]
     Active Substance: VERAPAMIL HYDROCHLORIDE
     Indication: HEART RATE INCREASED
  6. VERAPAMIL [Suspect]
     Active Substance: VERAPAMIL HYDROCHLORIDE
     Indication: BLOOD PRESSURE INCREASED
     Route: 065
  7. IVABRADINE [Suspect]
     Active Substance: IVABRADINE
     Indication: TACHYCARDIA
     Route: 065
  8. TRANDOLAPRIL. [Suspect]
     Active Substance: TRANDOLAPRIL
     Indication: BLOOD PRESSURE INCREASED
     Route: 065
  9. FOSTER [Suspect]
     Active Substance: BECLOMETHASONE\FORMOTEROL
     Indication: IDIOPATHIC PULMONARY FIBROSIS
     Route: 065
  10. SULODEXIL [Suspect]
     Active Substance: SULODEXIDE
     Route: 065

REACTIONS (9)
  - Blood pressure increased [Unknown]
  - Bradycardia [Unknown]
  - Oedema [Unknown]
  - Extrasystoles [Unknown]
  - Palpitations [Unknown]
  - Cough [Unknown]
  - Tachycardia [Unknown]
  - Total lung capacity decreased [Unknown]
  - Heart rate increased [Unknown]
